FAERS Safety Report 22258925 (Version 1)
Quarter: 2023Q2

REPORT INFORMATION
  Report Type: Spontaneous
  Country: GB (occurrence: GB)
  Receive Date: 20230427
  Receipt Date: 20230427
  Transmission Date: 20230721
  Serious: Yes (Life-Threatening, Other)
  Sender: FDA-Public Use
  Company Number: GB-MHRA-MED-202302082028035270-WHPNF

PATIENT
  Age: 40 Year
  Sex: Female
  Weight: 94 kg

DRUGS (1)
  1. LIDOCAINE HYDROCHLORIDE\METHYLPREDNISOLONE ACETATE [Suspect]
     Active Substance: LIDOCAINE HYDROCHLORIDE\METHYLPREDNISOLONE ACETATE
     Indication: Migraine
     Dosage: UNK
     Dates: start: 20220507

REACTIONS (6)
  - Meningitis bacterial [Recovered/Resolved with Sequelae]
  - Alopecia [Unknown]
  - Off label use [Unknown]
  - Product administration error [Unknown]
  - Accidental exposure to product [Unknown]
  - Exposure via skin contact [Unknown]

NARRATIVE: CASE EVENT DATE: 20220501
